FAERS Safety Report 8151680-9 (Version None)
Quarter: 2012Q1

REPORT INFORMATION
  Report Type: 
  Country: None (occurrence: None)
  Receive Date: 20120221
  Receipt Date: 20120207
  Transmission Date: 20120608
  Serious: Yes (Hospitalization)
  Sender: FDA-Public Use
  Company Number: NL-AMGEN-NLDSP2012007702

PATIENT
  Sex: Male
  Weight: 98 kg

DRUGS (10)
  1. ENBREL [Suspect]
     Indication: RHEUMATOID ARTHRITIS
     Dosage: 50 MG, WEEKLY
     Dates: start: 20110131, end: 20111101
  2. ENALAPRIL [Concomitant]
     Dosage: 5 MG, 1X/DAY
     Dates: start: 20111122
  3. ENBREL [Suspect]
     Dosage: 50 MG, WEEKLY
     Dates: start: 20110503, end: 20111115
  4. AMIODARONE HCL [Concomitant]
     Dosage: 200 MG, 1X/DAY
     Dates: start: 20030101
  5. PANTOPRAZOLE [Concomitant]
     Dosage: 40 MG, 1X/DAY
     Dates: start: 20111222
  6. ENBREL [Suspect]
     Dosage: 50 MG, WEEKLY
     Dates: start: 20110131, end: 20110422
  7. ACENOCOUMAROL [Concomitant]
     Dosage: UNK MG, 2X/DAY
     Dates: start: 20030101
  8. CALCIUM CARBONATE [Concomitant]
     Dosage: 5 MG, 3X/DAY
     Dates: start: 20120131
  9. ALFACALCIDOL [Concomitant]
     Dosage: 0.25 UNK, 1X/DAY
     Dates: start: 20111222
  10. AMLODIPINE [Concomitant]
     Dosage: 5 MG, 1X/DAY
     Dates: start: 20111222

REACTIONS (1)
  - RENAL FAILURE ACUTE [None]
